FAERS Safety Report 9144385 (Version 2)
Quarter: 2013Q2

REPORT INFORMATION
  Report Type: Spontaneous
  Country: JP (occurrence: JP)
  Receive Date: 20130306
  Receipt Date: 20130530
  Transmission Date: 20140414
  Serious: Yes (Other)
  Sender: FDA-Public Use
  Company Number: JP-ROCHE-1196124

PATIENT
  Age: 93 Year
  Sex: Female

DRUGS (10)
  1. TAMIFLU [Suspect]
     Indication: INFLUENZA
     Route: 048
     Dates: start: 20130129, end: 20130129
  2. TAMIFLU [Suspect]
     Indication: INFLUENZA
     Route: 048
     Dates: start: 20130130, end: 20130201
  3. CRAVIT [Suspect]
     Indication: INFECTION
     Route: 048
     Dates: start: 20130129, end: 20130201
  4. LANIRAPID [Concomitant]
     Indication: CARDIAC FAILURE CONGESTIVE
     Dosage: DOSAGE IS UNCERTAIN.
     Route: 048
  5. LASIX [Concomitant]
     Indication: CARDIAC FAILURE CONGESTIVE
     Dosage: DOSAGE IS UNCERTAIN.
     Route: 048
  6. PARIET [Concomitant]
     Indication: GASTROOESOPHAGEAL REFLUX DISEASE
     Dosage: DOSAGE IS UNCERTAIN.
     Route: 048
  7. ADALAT L [Concomitant]
     Indication: HYPERTENSION
     Dosage: DOSAGE IS UNCERTAIN.
     Route: 048
  8. POTASSIUM L-ASPARTATE [Concomitant]
     Indication: PROPHYLAXIS
     Dosage: DOSAGE IS UNCERTAIN.
     Route: 048
  9. ALINAMINE-F [Concomitant]
     Indication: SPINAL OSTEOARTHRITIS
     Route: 048
  10. OSTELUC [Concomitant]
     Indication: SPINAL OSTEOARTHRITIS
     Dosage: TAKEN AS NEEDED (AT THE PAIN).
     Route: 048

REACTIONS (2)
  - Abnormal behaviour [Recovered/Resolved]
  - Hallucination [Recovered/Resolved]
